FAERS Safety Report 9835518 (Version 2)
Quarter: 2014Q1

REPORT INFORMATION
  Report Type: Spontaneous
  Country: US (occurrence: US)
  Receive Date: 20140122
  Receipt Date: 20140122
  Transmission Date: 20141002
  Serious: Yes (Hospitalization)
  Sender: FDA-Public Use
  Company Number: US-BRISTOL-MYERS SQUIBB COMPANY-19715747

PATIENT
  Age: 83 Year
  Sex: Male
  Weight: 68 kg

DRUGS (16)
  1. ELIQUIS [Suspect]
     Indication: ATRIAL FIBRILLATION
     Dosage: 1DF=2.5-UNITS NOS
     Dates: start: 20131010, end: 20131029
  2. BABY ASPIRIN [Suspect]
     Route: 048
  3. IRON [Concomitant]
  4. PROSCAR [Concomitant]
  5. LEVOTHYROXINE [Concomitant]
  6. LOVASTATIN [Concomitant]
  7. METOPROLOL [Concomitant]
  8. FLOMAX [Concomitant]
  9. AMPICILLIN [Concomitant]
  10. ROCEPHIN [Concomitant]
  11. TORSEMIDE [Concomitant]
  12. LISINOPRIL [Concomitant]
  13. NEPHRO-VITE [Concomitant]
  14. FERROUS SULFATE [Concomitant]
  15. FUROSEMIDE [Concomitant]
  16. SENNA [Concomitant]

REACTIONS (2)
  - Haemorrhage intracranial [Recovered/Resolved]
  - Gastrointestinal haemorrhage [Recovered/Resolved]
